FAERS Safety Report 24879869 (Version 1)
Quarter: 2025Q1

REPORT INFORMATION
  Report Type: Spontaneous
  Country: PL (occurrence: PL)
  Receive Date: 20250123
  Receipt Date: 20250123
  Transmission Date: 20250409
  Serious: Yes (Other)
  Sender: SANDOZ
  Company Number: PL-PFIZER INC-PV202500005063

PATIENT
  Age: 37 Year

DRUGS (2)
  1. TALAZOPARIB [Suspect]
     Active Substance: TALAZOPARIB
     Indication: Product used for unknown indication
     Dosage: 1 MG, DAILY
     Route: 065
     Dates: start: 202407
  2. ZOLEDRONIC ACID [Suspect]
     Active Substance: ZOLEDRONIC ACID
     Indication: Product used for unknown indication
     Dosage: UNK , Q3MO, EVERY 3 MONTHS
     Route: 065

REACTIONS (4)
  - Neutropenia [Unknown]
  - Myelosuppression [Unknown]
  - Leukopenia [Unknown]
  - Anaemia [Unknown]
